FAERS Safety Report 16304658 (Version 2)
Quarter: 2019Q2

REPORT INFORMATION
  Report Type: Spontaneous
  Country: US (occurrence: US)
  Receive Date: 20190513
  Receipt Date: 20190607
  Transmission Date: 20190711
  Serious: No
  Sender: FDA-Public Use
  Company Number: US-ASTRAZENECA-2019SE61591

PATIENT
  Age: 872 Month
  Sex: Female
  Weight: 80.7 kg

DRUGS (2)
  1. TRESIBA [Concomitant]
     Active Substance: INSULIN DEGLUDEC
     Indication: DIABETES MELLITUS
  2. BYDUREON [Suspect]
     Active Substance: EXENATIDE
     Indication: BLOOD GLUCOSE ABNORMAL
     Route: 058

REACTIONS (7)
  - Sleep apnoea syndrome [Unknown]
  - Product packaging quantity issue [Unknown]
  - Pain [Recovered/Resolved]
  - Device leakage [Unknown]
  - Wrong technique in product usage process [Unknown]
  - Product label confusion [Unknown]
  - Device issue [Unknown]

NARRATIVE: CASE EVENT DATE: 201903
